FAERS Safety Report 20348518 (Version 1)
Quarter: 2022Q1

REPORT INFORMATION
  Report Type: Report from Study
  Country: US (occurrence: US)
  Receive Date: 20220119
  Receipt Date: 20220119
  Transmission Date: 20220423
  Serious: Yes (Hospitalization, Other)
  Sender: FDA-Public Use
  Company Number: US-ABBVIE-22K-163-4237081-00

PATIENT
  Sex: Female

DRUGS (3)
  1. HUMIRA [Suspect]
     Active Substance: ADALIMUMAB
     Indication: Ankylosing spondylitis
     Route: 058
  2. PFIZER-BIONTECH COVID-19 VACCINE [Concomitant]
     Active Substance: TOZINAMERAN
     Indication: COVID-19 immunisation
     Dosage: 1ST DOSE PFIZER/BIONTECH
     Route: 030
  3. PFIZER-BIONTECH COVID-19 VACCINE [Concomitant]
     Active Substance: TOZINAMERAN
     Dosage: BOOSTER DOSE PFIZER/BIONTECH
     Route: 030

REACTIONS (6)
  - Fall [Recovering/Resolving]
  - Femur fracture [Recovering/Resolving]
  - Wheezing [Recovering/Resolving]
  - Cough [Recovering/Resolving]
  - Blood iron decreased [Unknown]
  - Epstein-Barr virus infection [Recovered/Resolved]
